FAERS Safety Report 8804342 (Version 2)
Quarter: 2012Q4

REPORT INFORMATION
  Report Type: 
  Country: JP (occurrence: JP)
  Receive Date: 20120924
  Receipt Date: 20121106
  Transmission Date: 20130627
  Serious: Yes (Other)
  Sender: FDA-Public Use
  Company Number: JP-ELI_LILLY_AND_COMPANY-JP201209003297

PATIENT
  Sex: Female
  Weight: 49 kg

DRUGS (6)
  1. EVISTA [Suspect]
     Indication: OSTEOPOROSIS
     Dosage: 60 mg, qd
     Route: 048
     Dates: start: 20101113
  2. ADALAT [Concomitant]
     Dosage: 10 mg, bid
     Route: 048
  3. OLMETEC [Concomitant]
     Dosage: UNK
     Route: 048
  4. RIZE [Concomitant]
     Dosage: 5 mg, qd
  5. PLAVIX [Concomitant]
     Dosage: 25 mg, qd
     Route: 048
  6. CALCITAMIN [Concomitant]
     Dosage: 0.5 ug, qd
     Route: 048

REACTIONS (1)
  - Breast cancer [Recovering/Resolving]
